FAERS Safety Report 24289803 (Version 1)
Quarter: 2024Q3

REPORT INFORMATION
  Report Type: Spontaneous
  Country: DE (occurrence: DE)
  Receive Date: 20240906
  Receipt Date: 20240906
  Transmission Date: 20241016
  Serious: No
  Sender: ALKEM
  Company Number: None

PATIENT
  Sex: Female

DRUGS (1)
  1. PREGABALIN [Suspect]
     Active Substance: PREGABALIN
     Indication: Nerve compression
     Dosage: 100 MILLIGRAM, TID (EVERY 8 HOUR)
     Route: 065

REACTIONS (2)
  - Onychoclasis [Unknown]
  - Dry skin [Recovering/Resolving]
